FAERS Safety Report 4831665-8 (Version None)
Quarter: 2005Q4

REPORT INFORMATION
  Report Type: 
  Country: None (occurrence: None)
  Receive Date: 20051116
  Receipt Date: 20051103
  Transmission Date: 20060501
  Serious: Yes (Other)
  Sender: FDA-Public Use
  Company Number: PHEH2005US12230

PATIENT
  Age: 44 Year
  Sex: Male
  Weight: 88.4 kg

DRUGS (2)
  1. LAMISIL [Suspect]
     Indication: TINEA CRURIS
     Dosage: TOPICAL
     Route: 061
     Dates: start: 20051103
  2. NORVASC [Concomitant]

REACTIONS (4)
  - DIZZINESS [None]
  - NAUSEA [None]
  - PALLOR [None]
  - SYNCOPE [None]
